FAERS Safety Report 6447424-9 (Version None)
Quarter: 2009Q4

REPORT INFORMATION
  Report Type: 
  Country: None (occurrence: None)
  Receive Date: 20091119
  Receipt Date: 20091112
  Transmission Date: 20100525
  Serious: Yes (Other)
  Sender: FDA-Public Use
  Company Number: US-BAXTER-2009BH017401

PATIENT
  Age: 53 Year
  Sex: Male

DRUGS (1)
  1. ADENOSINE [Suspect]
     Indication: TACHYCARDIA
     Route: 065

REACTIONS (2)
  - CARDIAC ARREST [None]
  - CYANOSIS [None]
